FAERS Safety Report 9186301 (Version 2)
Quarter: 2013Q2

REPORT INFORMATION
  Report Type: Spontaneous
  Country: US (occurrence: US)
  Receive Date: 20130325
  Receipt Date: 20130410
  Transmission Date: 20140414
  Serious: Yes (Hospitalization)
  Sender: FDA-Public Use
  Company Number: US-AMGEN-USASP2013018485

PATIENT
  Sex: Male

DRUGS (4)
  1. SENSIPAR [Suspect]
     Indication: HYPERCALCAEMIA OF MALIGNANCY
     Dosage: 90 MG, QID
  2. SENSIPAR [Suspect]
     Indication: HYPERPARATHYROIDISM SECONDARY
  3. XGEVA [Suspect]
     Indication: HYPERCALCAEMIA
     Dosage: 120 MG, UNK
  4. XGEVA [Suspect]

REACTIONS (2)
  - Hypocalcaemia [Unknown]
  - Drug ineffective [Unknown]
